FAERS Safety Report 21651767 (Version 1)
Quarter: 2022Q4

REPORT INFORMATION
  Report Type: Spontaneous
  Country: CA (occurrence: CA)
  Receive Date: 20221128
  Receipt Date: 20221128
  Transmission Date: 20230112
  Serious: Yes (Other)
  Sender: FDA-Public Use
  Company Number: CA-PFIZER INC-PV202200048901

PATIENT
  Age: 59 Year
  Sex: Male

DRUGS (2)
  1. BRAFTOVI [Suspect]
     Active Substance: ENCORAFENIB
     Indication: Colon cancer
     Dosage: PRIOR TO AE: 4 PILLS TAKEN TOGETHER - AFTER AE: 2 PILLS AT A TIME WITH ONE HOUR APART
     Dates: start: 20220815
  2. BRAFTOVI [Suspect]
     Active Substance: ENCORAFENIB
     Dosage: 300 MG, CYCLIC, TAKE 4 CAPSULES (300 MG TOTAL) BY MOUTH DAILY. CYCLE: DAY 1, CYCLE 8
     Route: 048
     Dates: start: 20221006

REACTIONS (9)
  - Liver disorder [Unknown]
  - Muscle spasms [Unknown]
  - Asthenia [Unknown]
  - Somnolence [Unknown]
  - Abdominal discomfort [Unknown]
  - Haemoglobin increased [Unknown]
  - Weight decreased [Unknown]
  - Body surface area decreased [Unknown]
  - Blood test abnormal [Unknown]

NARRATIVE: CASE EVENT DATE: 20220101
